FAERS Safety Report 25378620 (Version 1)
Quarter: 2025Q2

REPORT INFORMATION
  Report Type: Spontaneous
  Country: US (occurrence: US)
  Receive Date: 20250530
  Receipt Date: 20250530
  Transmission Date: 20250716
  Serious: Yes (Death, Hospitalization, Other)
  Sender: UNITED THERAPEUTICS
  Company Number: US-UNITED THERAPEUTICS-UNT-2025-018149

PATIENT
  Age: 25 Year
  Sex: Female

DRUGS (5)
  1. TYVASO [Suspect]
     Active Substance: TREPROSTINIL
     Indication: Pulmonary arterial hypertension
     Dosage: 54 ?G, QD
  2. TYVASO [Suspect]
     Active Substance: TREPROSTINIL
     Indication: Mixed connective tissue disease
     Dosage: 72 ?G, QID
  3. TYVASO [Suspect]
     Active Substance: TREPROSTINIL
  4. SILDENAFIL [Concomitant]
     Active Substance: SILDENAFIL
     Indication: Product used for unknown indication
     Dosage: 20 MG, TID
  5. FUROSEMIDE [Concomitant]
     Active Substance: FUROSEMIDE
     Indication: Product used for unknown indication

REACTIONS (14)
  - Multiple organ dysfunction syndrome [Fatal]
  - Pulmonary hypertension [Fatal]
  - Interstitial lung disease [Unknown]
  - Pericardial effusion [Unknown]
  - Right ventricular dysfunction [Unknown]
  - Chest pain [Unknown]
  - Dyspnoea [Unknown]
  - Brain natriuretic peptide increased [Unknown]
  - Maternal exposure during pregnancy [Recovered/Resolved]
  - Premature delivery [Recovered/Resolved]
  - Live birth [Recovered/Resolved]
  - Gestational hypertension [Unknown]
  - Right ventricular dilatation [Unknown]
  - Inappropriate schedule of product administration [Recovered/Resolved]
